FAERS Safety Report 4815446-7 (Version None)
Quarter: 2005Q4

REPORT INFORMATION
  Report Type: 
  Country: None (occurrence: None)
  Receive Date: 20051027
  Receipt Date: 20051027
  Transmission Date: 20060501
  Serious: Yes (Hospitalization)
  Sender: FDA-Public Use
  Company Number: None

PATIENT
  Age: 54 Year
  Sex: Female

DRUGS (3)
  1. LAPATINIB 1500 /DAY [Suspect]
     Indication: BILE DUCT CANCER
     Dosage: 1500 MG QD PO
     Route: 048
     Dates: start: 20050818, end: 20050912
  2. GEMCITABINE [Suspect]
     Indication: BILE DUCT CANCER
     Dosage: 1.76GM IV
     Route: 042
     Dates: start: 20050818
  3. OXALIPLATIN [Suspect]
     Indication: BILE DUCT CANCER
     Dosage: 176 MG IV
     Route: 042
     Dates: start: 20050831

REACTIONS (6)
  - BACTERIAL INFECTION [None]
  - CHILLS [None]
  - DEEP VEIN THROMBOSIS [None]
  - DIALYSIS [None]
  - RENAL FAILURE ACUTE [None]
  - SEPSIS [None]
